FAERS Safety Report 17907252 (Version 1)
Quarter: 2020Q2

REPORT INFORMATION
  Report Type: Spontaneous
  Country: US (occurrence: US)
  Receive Date: 20200617
  Receipt Date: 20200617
  Transmission Date: 20200714
  Serious: Yes (Hospitalization)
  Sender: FDA-Public Use
  Company Number: US-FRESENIUS MEDICAL CARE RENAL THERAPIES GROUP-FMC-2006-000641

PATIENT
  Age: 57 Year
  Sex: Male
  Weight: 78 kg

DRUGS (8)
  1. BENICAR [Concomitant]
     Active Substance: OLMESARTAN MEDOXOMIL
  2. HYDRALAZINE [Concomitant]
     Active Substance: HYDRALAZINE HYDROCHLORIDE
  3. METOPROLOL. [Concomitant]
     Active Substance: METOPROLOL
  4. AMLODIPINE [Concomitant]
     Active Substance: AMLODIPINE BESYLATE
  5. CLONIDINE. [Concomitant]
     Active Substance: CLONIDINE
  6. DELFLEX WITH DEXTROSE 2.5% LOW MAGNESIUM LOW CALCIUM [Suspect]
     Active Substance: CALCIUM CHLORIDE\DEXTROSE\MAGNESIUM CHLORIDE\SODIUM CHLORIDE\SODIUM LACTATE
     Indication: END STAGE RENAL DISEASE
     Dosage: 4-5 EXCHANGES OF 2.350 ML, DWELL TIME OF 101 MINUTES,  LAST FILL VOLUME OF 500 ML, DAYTIME EXCHANGE
     Route: 033
  7. GLYBURIDE. [Suspect]
     Active Substance: GLYBURIDE
  8. BUMEX [Concomitant]
     Active Substance: BUMETANIDE

REACTIONS (3)
  - Hypoglycaemia [Unknown]
  - Hypertensive urgency [Unknown]
  - Fluid overload [Unknown]
